FAERS Safety Report 6362846-2 (Version None)
Quarter: 2009Q3

REPORT INFORMATION
  Report Type: 
  Country: None (occurrence: None)
  Receive Date: 20090919
  Receipt Date: 20090609
  Transmission Date: 20100115
  Serious: No
  Sender: FDA-Public Use
  Company Number: US-ABBOTT-09P-163-0579161-00

PATIENT
  Sex: Female
  Weight: 65.83 kg

DRUGS (4)
  1. HUMIRA [Suspect]
     Indication: PSORIATIC ARTHROPATHY
     Route: 058
     Dates: start: 20070101, end: 20090501
  2. HUMIRA [Suspect]
     Dosage: HUMIRA PRE-FILLED SYRINGE
     Route: 058
     Dates: start: 20090508
  3. METHOTREXATE [Concomitant]
     Indication: DRUG USE FOR UNKNOWN INDICATION
  4. IBUPROFEN [Concomitant]
     Indication: DRUG USE FOR UNKNOWN INDICATION
     Dosage: 3 TIMES DAILY AS NEEDED
     Route: 048

REACTIONS (2)
  - ARTHRALGIA [None]
  - INJECTION SITE PAIN [None]
